FAERS Safety Report 9504377 (Version 1)
Quarter: 2013Q3

REPORT INFORMATION
  Report Type: Spontaneous
  Country: US (occurrence: US)
  Receive Date: 20130906
  Receipt Date: 20130906
  Transmission Date: 20140515
  Serious: No
  Sender: FDA-Public Use
  Company Number: US-ASTRAZENECA-2012SE69632

PATIENT
  Sex: Male

DRUGS (5)
  1. SYMBICORT [Suspect]
     Route: 055
  2. COUMADIN [Concomitant]
     Indication: COAGULOPATHY
  3. PREDNISONE [Concomitant]
  4. BLOOD PRESSURE MEDICINE [Concomitant]
     Indication: BLOOD PRESSURE ABNORMAL
  5. CHOLESTEROL MEDICATION [Concomitant]
     Indication: BLOOD CHOLESTEROL ABNORMAL

REACTIONS (1)
  - Laboratory test abnormal [Unknown]
